FAERS Safety Report 13705211 (Version 1)
Quarter: 2017Q2

REPORT INFORMATION
  Report Type: Spontaneous
  Country: GB (occurrence: GB)
  Receive Date: 20170630
  Receipt Date: 20170630
  Transmission Date: 20170830
  Serious: Yes (Other)
  Sender: FDA-Public Use
  Company Number: GB-TEVA-780674ACC

PATIENT
  Age: 27 Year
  Sex: Male

DRUGS (3)
  1. PRIADEL [Concomitant]
     Active Substance: LITHIUM CARBONATE
  2. CITALOPRAM [Concomitant]
     Active Substance: CITALOPRAM HYDROBROMIDE
  3. ARIPIPRAZOLE. [Suspect]
     Active Substance: ARIPIPRAZOLE
     Route: 048

REACTIONS (2)
  - Urinary retention [Recovered/Resolved]
  - Insomnia [Recovered/Resolved]
